FAERS Safety Report 4834411-7 (Version None)
Quarter: 2005Q4

REPORT INFORMATION
  Report Type: 
  Country: None (occurrence: None)
  Receive Date: 20051122
  Receipt Date: 20051102
  Transmission Date: 20060501
  Serious: Yes (Other)
  Sender: FDA-Public Use
  Company Number: PHNU2005DE03634

PATIENT
  Age: 41 Year
  Sex: Male

DRUGS (7)
  1. TRILEPTAL [Suspect]
     Indication: SIMPLE PARTIAL SEIZURES
     Dosage: 150-700 MG/D
     Dates: start: 20050801, end: 20051001
  2. TRILEPTAL [Suspect]
     Dosage: 750 MG
     Dates: start: 20051001, end: 20051001
  3. TRILEPTAL [Suspect]
     Dosage: 900 MG/D
     Dates: start: 20051001, end: 20051001
  4. TRILEPTAL [Suspect]
     Dosage: 1050 MG/D
     Dates: start: 20051001
  5. TARKA [Suspect]
     Dosage: 1 DF, QD
     Dates: start: 20050801, end: 20051101
  6. UDRIK [Concomitant]
     Dates: start: 20051107
  7. CARVEDILOL [Concomitant]
     Indication: BLOOD PRESSURE INCREASED
     Dates: start: 20051114

REACTIONS (16)
  - ABDOMINAL DISTENSION [None]
  - ABDOMINAL PAIN LOWER [None]
  - BALANCE DISORDER [None]
  - BLOOD PRESSURE INCREASED [None]
  - CARDIOMYOPATHY [None]
  - CONDITION AGGRAVATED [None]
  - DIARRHOEA [None]
  - DIZZINESS [None]
  - DRUG INTERACTION [None]
  - ERYTHEMA [None]
  - HEADACHE [None]
  - LEUKOPENIA [None]
  - NAUSEA [None]
  - PHARYNGOLARYNGEAL PAIN [None]
  - SIMPLE PARTIAL SEIZURES [None]
  - THERAPEUTIC RESPONSE UNEXPECTED [None]
